FAERS Safety Report 19064020 (Version 1)
Quarter: 2021Q1

REPORT INFORMATION
  Report Type: Spontaneous
  Country: FR (occurrence: FR)
  Receive Date: 20210326
  Receipt Date: 20210326
  Transmission Date: 20210420
  Serious: Yes (Other)
  Sender: FDA-Public Use
  Company Number: FR-GLAXOSMITHKLINE-FR2020EME254462

PATIENT

DRUGS (1)
  1. BENLYSTA [Suspect]
     Active Substance: BELIMUMAB
     Indication: SYSTEMIC LUPUS ERYTHEMATOSUS
     Dosage: 200 MG

REACTIONS (7)
  - Systemic lupus erythematosus [Unknown]
  - Injection site pain [Unknown]
  - Abdominal pain [Unknown]
  - Off label use [Unknown]
  - Weight increased [Unknown]
  - Arthralgia [Recovering/Resolving]
  - Rash [Unknown]
